FAERS Safety Report 19823051 (Version 3)
Quarter: 2021Q3

REPORT INFORMATION
  Report Type: Spontaneous
  Country: KE (occurrence: KE)
  Receive Date: 20210913
  Receipt Date: 20210928
  Transmission Date: 20211014
  Serious: Yes (Death)
  Sender: FDA-Public Use
  Company Number: KE-PFIZER INC-202101150851

PATIENT
  Age: 8 Year
  Sex: Male
  Weight: 34 kg

DRUGS (6)
  1. NEURONTIN [Suspect]
     Active Substance: GABAPENTIN
     Indication: ANALGESIC THERAPY
     Dosage: 300 MG (3 CAPSULES) X 3
     Dates: start: 20210224, end: 20210225
  2. MORPHINE [Suspect]
     Active Substance: MORPHINE
     Dosage: 3ML/HR FOR BETWEEN 5AM TO 3PM
     Route: 030
     Dates: start: 20210224
  3. LASIX [Concomitant]
     Active Substance: FUROSEMIDE
     Dosage: 20 MG
  4. ROCEPHINE [Concomitant]
     Active Substance: CEFTRIAXONE SODIUM
     Dosage: 500 MG
     Route: 042
  5. KETOROLAC [Concomitant]
     Active Substance: KETOROLAC TROMETHAMINE
     Dosage: 30 MG
  6. MORPHINE [Suspect]
     Active Substance: MORPHINE
     Indication: ANALGESIC THERAPY
     Dosage: 17.5 ML/HR FOR ONE HOUR
     Route: 030
     Dates: start: 20210223

REACTIONS (8)
  - Cardiac arrest [Fatal]
  - Respiratory rate decreased [Fatal]
  - Renal failure [Fatal]
  - Somnolence [Fatal]
  - Confusional state [Fatal]
  - Dizziness [Fatal]
  - Headache [Fatal]
  - Off label use [Unknown]
